FAERS Safety Report 23133060 (Version 1)
Quarter: 2023Q4

REPORT INFORMATION
  Report Type: Spontaneous
  Country: CA (occurrence: None)
  Receive Date: 20231101
  Receipt Date: 20231101
  Transmission Date: 20240110
  Serious: Yes (Other)
  Sender: FDA-Public Use
  Company Number: CA-PFIZER INC-202300287091

PATIENT
  Age: 47 Year
  Sex: Male

DRUGS (8)
  1. METHOTREXATE [Suspect]
     Active Substance: METHOTREXATE
     Indication: Ankylosing spondylitis
     Dates: start: 20230726, end: 20230821
  2. METHOTREXATE [Suspect]
     Active Substance: METHOTREXATE
     Dates: start: 20230529
  3. FOLIC ACID [Concomitant]
     Active Substance: FOLIC ACID
     Dosage: FREQUENCY: ONCE A WEEK X 52 WEEK
     Dates: start: 20230529
  4. NAPROXEN [Concomitant]
     Active Substance: NAPROXEN
     Dosage: MORE THAN 1 YEAR
  5. NAPROXEN [Concomitant]
     Active Substance: NAPROXEN
     Dosage: (DECREASE) AS NEEDED X 3 MTH30 WITH 1 REFILLS
     Dates: start: 20230209
  6. RABEPRAZOLE SODIUM [Concomitant]
     Active Substance: RABEPRAZOLE SODIUM
     Dates: start: 20221031
  7. CELEBREX [Concomitant]
     Active Substance: CELECOXIB
     Dates: start: 20230630
  8. CEFUROXIME AXETIL [Concomitant]
     Active Substance: CEFUROXIME AXETIL

REACTIONS (7)
  - Ankylosing spondylitis [Unknown]
  - Enthesopathy [Unknown]
  - Spondyloarthropathy [Unknown]
  - Sacroiliitis [Unknown]
  - Joint effusion [Unknown]
  - Drug ineffective for unapproved indication [Unknown]
  - Product use in unapproved indication [Unknown]

NARRATIVE: CASE EVENT DATE: 20230101
